FAERS Safety Report 17006008 (Version 1)
Quarter: 2019Q4

REPORT INFORMATION
  Report Type: Spontaneous
  Country: US (occurrence: US)
  Receive Date: 20191107
  Receipt Date: 20191107
  Transmission Date: 20200122
  Serious: Yes (Other)
  Sender: FDA-Public Use
  Company Number: US-SA-2018SA001040

PATIENT
  Age: 65 Year
  Sex: Female
  Weight: 104 kg

DRUGS (7)
  1. TAXOTERE [Suspect]
     Active Substance: DOCETAXEL
     Dosage: 75MG/M2-160, Q3W
     Route: 042
     Dates: start: 20130410, end: 20130410
  2. ZETIA [Concomitant]
     Active Substance: EZETIMIBE
  3. SYNTHROID [Concomitant]
     Active Substance: LEVOTHYROXINE SODIUM
     Dosage: UNK
  4. CRESTOR [Concomitant]
     Active Substance: ROSUVASTATIN CALCIUM
  5. LOSARTAN. [Concomitant]
     Active Substance: LOSARTAN
     Dosage: UNK
  6. TAXOTERE [Suspect]
     Active Substance: DOCETAXEL
     Indication: BREAST CANCER FEMALE
     Dosage: 75MG/M2-160, Q3W
     Route: 042
     Dates: start: 20130206, end: 20130206
  7. OMEPRAZOLE. [Concomitant]
     Active Substance: OMEPRAZOLE

REACTIONS (3)
  - Alopecia [Not Recovered/Not Resolved]
  - Impaired quality of life [Unknown]
  - Anxiety [Unknown]

NARRATIVE: CASE EVENT DATE: 20131010
